FAERS Safety Report 6935957-8 (Version None)
Quarter: 2010Q3

REPORT INFORMATION
  Report Type: 
  Country: None (occurrence: None)
  Receive Date: 20100823
  Receipt Date: 20100809
  Transmission Date: 20110219
  Serious: Yes (Other)
  Sender: FDA-Public Use
  Company Number: US-ELI_LILLY_AND_COMPANY-US201008002452

PATIENT
  Sex: Female

DRUGS (3)
  1. HUMALOG MIX 75/25 [Suspect]
     Dosage: 100 U/ML, UNK
     Dates: start: 20000101
  2. METFORMIN [Concomitant]
  3. SYNTHROID [Concomitant]

REACTIONS (2)
  - CATARACT [None]
  - HEPATIC CIRRHOSIS [None]
